FAERS Safety Report 4907439-6 (Version None)
Quarter: 2006Q1

REPORT INFORMATION
  Report Type: 
  Country: None (occurrence: None)
  Receive Date: 20060208
  Receipt Date: 20060206
  Transmission Date: 20060701
  Serious: Yes (Hospitalization)
  Sender: FDA-Public Use
  Company Number: TCI2006A00431

PATIENT
  Age: 35 Year
  Sex: Male

DRUGS (1)
  1. LANSAP                      (LANSOPRAZOLE, CLARITHROMYCIN, AMOXICILLIN [Suspect]
     Indication: HELICOBACTER INFECTION
     Dosage: CARD (0.5 CARD, 2 IN 1 D)
     Route: 048
     Dates: start: 20060106, end: 20060112

REACTIONS (4)
  - CARDIAC FAILURE ACUTE [None]
  - JAUNDICE [None]
  - RENAL FAILURE ACUTE [None]
  - VOMITING [None]
